FAERS Safety Report 8833547 (Version 3)
Quarter: 2013Q2

REPORT INFORMATION
  Report Type: Spontaneous
  Country: US (occurrence: US)
  Receive Date: 20121010
  Receipt Date: 20130411
  Transmission Date: 20140414
  Serious: Yes (Other)
  Sender: FDA-Public Use
  Company Number: US-009507513-1210USA001761

PATIENT
  Age: 81 Year
  Sex: Female
  Weight: 63.49 kg

DRUGS (14)
  1. JANUMET [Suspect]
     Indication: TYPE 2 DIABETES MELLITUS
     Dosage: 50/1000 MG BID
     Route: 048
     Dates: start: 20110104, end: 20120802
  2. BYSTOLIC [Concomitant]
     Indication: ATRIAL FIBRILLATION
     Dosage: 10 MG, QD
     Route: 048
  3. LANOXIN [Concomitant]
     Indication: ATRIAL FIBRILLATION
     Dosage: 0.25 MG, QD
     Route: 048
  4. HYDROCHLOROTHIAZIDE (+) LISINOPRIL [Concomitant]
     Indication: HYPERTENSION
     Dosage: 20-12.5 MG, BID
     Route: 048
  5. SYNTHROID [Concomitant]
     Indication: HYPOTHYROIDISM
     Dosage: MWF 0.5TAB; 1 OTHERS
     Route: 048
  6. PROTONIX [Concomitant]
     Indication: GASTRITIS
     Dosage: 40 MG, QD
     Route: 048
  7. TRICOR (FENOFIBRATE) [Concomitant]
     Indication: HIGH DENSITY LIPOPROTEIN DECREASED
     Dosage: 145 MG, QD
     Route: 048
  8. ICAPS AREDS [Concomitant]
     Indication: EYE DISORDER
     Dosage: 1 SOFT GEL, QD
     Route: 048
  9. ASPIRIN [Concomitant]
     Indication: CEREBROVASCULAR ACCIDENT PROPHYLAXIS
     Dosage: MWF, UNK
     Route: 048
  10. PREMARIN [Concomitant]
     Indication: CYSTITIS
     Dosage: UNK, QW
     Route: 067
  11. FLORAJEN ACIDOPHILUS [Concomitant]
     Dosage: 460 MG, QD
     Route: 048
  12. LEVSIN [Concomitant]
     Indication: DIVERTICULITIS
     Dosage: 125 MG, Q6H30-60 MIN BEFORE MEAL
     Route: 060
  13. PROMETHAZINE HYDROCHLORIDE [Concomitant]
     Indication: NAUSEA
     Dosage: UNK, PRN
     Route: 048
  14. PROMETHAZINE HYDROCHLORIDE [Concomitant]
     Indication: VOMITING

REACTIONS (1)
  - Pancreatitis acute [Recovered/Resolved]
